FAERS Safety Report 6078753-9 (Version None)
Quarter: 2009Q1

REPORT INFORMATION
  Report Type: 
  Country: None (occurrence: None)
  Receive Date: 20090216
  Receipt Date: 20090206
  Transmission Date: 20090719
  Serious: Yes (Other)
  Sender: FDA-Public Use
  Company Number: JP-ASTRAZENECA-2009AP00936

PATIENT
  Age: 60 Year
  Sex: Male

DRUGS (5)
  1. MEROPEN [Suspect]
     Indication: SEPSIS
     Route: 041
     Dates: start: 20090125, end: 20090125
  2. ADONA [Concomitant]
  3. TRANSAMIN [Concomitant]
  4. MAGNESIUM OXIDE [Concomitant]
     Indication: POSTOPERATIVE CARE
     Dates: end: 20090125
  5. LIVACT [Concomitant]
     Indication: HEPATIC CIRRHOSIS
     Route: 048
     Dates: end: 20090125

REACTIONS (1)
  - ANAPHYLACTIC REACTION [None]
